FAERS Safety Report 6245799-7 (Version None)
Quarter: 2009Q2

REPORT INFORMATION
  Report Type: 
  Country: None (occurrence: None)
  Receive Date: 20090624
  Receipt Date: 20090610
  Transmission Date: 20091009
  Serious: Yes (Hospitalization, Other)
  Sender: FDA-Public Use
  Company Number: CERZ-10847

PATIENT
  Age: 67 Year
  Sex: Male

DRUGS (1)
  1. CEREZYME [Suspect]
     Indication: GAUCHER'S DISEASE
     Dosage: 2000 U, Q2W, INTRAVENOUS
     Route: 042
     Dates: start: 19970610

REACTIONS (4)
  - LUNG TRANSPLANT [None]
  - LUNG TRANSPLANT REJECTION [None]
  - OBSTRUCTIVE AIRWAYS DISORDER [None]
  - RESTRICTIVE PULMONARY DISEASE [None]
